FAERS Safety Report 9312506 (Version 1)
Quarter: 2013Q2

REPORT INFORMATION
  Report Type: Spontaneous
  Country: FR (occurrence: FR)
  Receive Date: 20130528
  Receipt Date: 20130528
  Transmission Date: 20140414
  Serious: Yes (Life-Threatening, Other)
  Sender: FDA-Public Use
  Company Number: FR-ASTRAZENECA-2013SE36655

PATIENT
  Age: 14710 Day
  Sex: Female

DRUGS (2)
  1. XEROQUEL [Suspect]
     Indication: MAJOR DEPRESSION
     Route: 048
     Dates: start: 201304
  2. XEROQUEL [Suspect]
     Indication: MAJOR DEPRESSION
     Dosage: 15 TABLETS SR OF XEROQUEL
     Route: 048
     Dates: start: 20130510

REACTIONS (4)
  - Overdose [Recovering/Resolving]
  - Suicide attempt [Recovering/Resolving]
  - Coma [Recovering/Resolving]
  - Drug ineffective [Unknown]
